FAERS Safety Report 7777425-X (Version None)
Quarter: 2011Q3

REPORT INFORMATION
  Report Type: 
  Country: None (occurrence: None)
  Receive Date: 20110922
  Receipt Date: 20110911
  Transmission Date: 20111222
  Serious: Yes (Hospitalization)
  Sender: FDA-Public Use
  Company Number: GB-DEXPHARM-20111399

PATIENT
  Age: 31 Year
  Sex: Female

DRUGS (12)
  1. PAROXETINE HCL [Suspect]
     Dosage: 20 MG MILLIGRAM(S) SEP. DOSAGES / INTERVAL: 3 IN 1 DAY
     Dates: start: 20110501
  2. CODEINE SULFATE [Suspect]
  3. DIAZEPAM [Suspect]
  4. MIRTAZAPINE [Suspect]
  5. TRAMADOL HCL [Suspect]
  6. LORAZEPAM [Suspect]
  7. DOMPERIDONE [Suspect]
  8. PROCYCLIDINE HYDROCHLORIDE 2MG TAB [Suspect]
  9. QUETIAPINE [Suspect]
  10. CLONAZEPAM [Suspect]
  11. OMEPRAZOLE [Suspect]
     Indication: GASTRIC PH DECREASED
  12. AMITRIPTYLINE HCL [Suspect]

REACTIONS (86)
  - DROOLING [None]
  - NIGHTMARE [None]
  - MANIA [None]
  - PREGNANCY [None]
  - FEELING JITTERY [None]
  - RESTLESSNESS [None]
  - DYSSTASIA [None]
  - CONFUSIONAL STATE [None]
  - BLOOD SODIUM DECREASED [None]
  - HALLUCINATION [None]
  - PYREXIA [None]
  - H1N1 INFLUENZA [None]
  - URINARY RETENTION [None]
  - SWELLING FACE [None]
  - CONTUSION [None]
  - PREMATURE DELIVERY [None]
  - SLEEP DISORDER [None]
  - EMOTIONAL DISORDER [None]
  - BALANCE DISORDER [None]
  - SWOLLEN TONGUE [None]
  - VISION BLURRED [None]
  - SPEECH DISORDER [None]
  - LIP SWELLING [None]
  - ARTHRALGIA [None]
  - NEUROLEPTIC MALIGNANT SYNDROME [None]
  - EYE PAIN [None]
  - BACK PAIN [None]
  - NECK PAIN [None]
  - IRRITABILITY [None]
  - MATERNAL EXPOSURE DURING PREGNANCY [None]
  - MOOD SWINGS [None]
  - PSYCHOTIC DISORDER [None]
  - PRURITUS [None]
  - CONDITION AGGRAVATED [None]
  - MALAISE [None]
  - RESTLESS LEGS SYNDROME [None]
  - ROAD TRAFFIC ACCIDENT [None]
  - DEPRESSION [None]
  - DECREASED APPETITE [None]
  - VOMITING [None]
  - GENERAL PHYSICAL HEALTH DETERIORATION [None]
  - SENSORY LOSS [None]
  - HEART RATE INCREASED [None]
  - POISONING [None]
  - HYPOAESTHESIA [None]
  - APHASIA [None]
  - TINNITUS [None]
  - DEPERSONALISATION [None]
  - MENSTRUAL DISORDER [None]
  - MUSCLE RIGIDITY [None]
  - GAIT DISTURBANCE [None]
  - MYALGIA [None]
  - ANXIETY [None]
  - VISUAL IMPAIRMENT [None]
  - DELIRIUM [None]
  - CYANOSIS [None]
  - INSOMNIA [None]
  - OEDEMA MOUTH [None]
  - GASTRIC PH DECREASED [None]
  - SCHIZOPHRENIA [None]
  - DYSPNOEA [None]
  - HYPOTONIA [None]
  - MUSCULOSKELETAL STIFFNESS [None]
  - DISTURBANCE IN ATTENTION [None]
  - MUSCLE DISORDER [None]
  - SUICIDAL IDEATION [None]
  - DIZZINESS [None]
  - PARAESTHESIA [None]
  - PAROSMIA [None]
  - PAIN IN EXTREMITY [None]
  - SEROTONIN SYNDROME [None]
  - MUSCLE SPASMS [None]
  - FATIGUE [None]
  - TREMOR [None]
  - EPILEPSY [None]
  - HEADACHE [None]
  - ASTHENIA [None]
  - HYPERSOMNIA [None]
  - AGITATION [None]
  - HYPERHIDROSIS [None]
  - FEELING ABNORMAL [None]
  - HALLUCINATION, AUDITORY [None]
  - INCONTINENCE [None]
  - COGWHEEL RIGIDITY [None]
  - MYDRIASIS [None]
  - PAIN [None]
